FAERS Safety Report 4545380-1 (Version None)
Quarter: 2005Q1

REPORT INFORMATION
  Report Type: 
  Country: None (occurrence: None)
  Receive Date: 20050103
  Receipt Date: 20041222
  Transmission Date: 20050727
  Serious: Yes (Other)
  Sender: FDA-Public Use
  Company Number: HQWYE157122DEC04

PATIENT
  Sex: Female

DRUGS (3)
  1. EFFEXOR [Suspect]
     Indication: AFFECTIVE DISORDER
     Dosage: SEE IMAGE
     Dates: end: 20030201
  2. EFFEXOR [Suspect]
     Indication: AFFECTIVE DISORDER
     Dosage: SEE IMAGE
     Dates: start: 20030201, end: 20030301
  3. EFFEXOR [Suspect]
     Indication: AFFECTIVE DISORDER
     Dosage: SEE IMAGE
     Dates: start: 20030301

REACTIONS (3)
  - DRUG EXPOSURE DURING PREGNANCY [None]
  - FEAR [None]
  - UTERINE CONTRACTIONS DURING PREGNANCY [None]
